FAERS Safety Report 4388450-3 (Version None)
Quarter: 2004Q3

REPORT INFORMATION
  Report Type: 
  Country: None (occurrence: None)
  Receive Date: 20040701
  Receipt Date: 20040624
  Transmission Date: 20050211
  Serious: Yes (Disabling)
  Sender: FDA-Public Use
  Company Number: FR-BRISTOL-MYERS SQUIBB COMPANY-12625174

PATIENT
  Age: 33 Year
  Sex: Female

DRUGS (1)
  1. HYDREA [Suspect]
     Indication: ESSENTIAL THROMBOCYTHAEMIA
     Route: 048
     Dates: start: 20020615, end: 20030201

REACTIONS (2)
  - AMENORRHOEA [None]
  - OVARIAN FAILURE [None]
